FAERS Safety Report 14807618 (Version 1)
Quarter: 2018Q2

REPORT INFORMATION
  Report Type: Spontaneous
  Country: US (occurrence: US)
  Receive Date: 20180425
  Receipt Date: 20180425
  Transmission Date: 20180711
  Serious: No
  Sender: FDA-Public Use
  Company Number: US-GLAXOSMITHKLINE-US2018069616

PATIENT
  Sex: Female

DRUGS (8)
  1. AMLODIPINE [Concomitant]
     Active Substance: AMLODIPINE BESYLATE
  2. BENLYSTA [Suspect]
     Active Substance: BELIMUMAB
     Indication: SYSTEMIC LUPUS ERYTHEMATOSUS
     Dosage: 960 MG, UNK
     Route: 042
     Dates: start: 201707
  3. TOPAMAX [Concomitant]
     Active Substance: TOPIRAMATE
  4. BENLYSTA [Suspect]
     Active Substance: BELIMUMAB
     Indication: SYSTEMIC LUPUS ERYTHEMATOSUS
     Dosage: 200 MG, WE
     Route: 058
     Dates: start: 20180417
  5. CYMBALTA [Concomitant]
     Active Substance: DULOXETINE HYDROCHLORIDE
  6. PLAQUENIL [Concomitant]
     Active Substance: HYDROXYCHLOROQUINE SULFATE
  7. MELOXICAM. [Concomitant]
     Active Substance: MELOXICAM
  8. IMURAN [Concomitant]
     Active Substance: AZATHIOPRINE

REACTIONS (5)
  - Headache [Recovered/Resolved]
  - Hallucination, auditory [Not Recovered/Not Resolved]
  - Abdominal discomfort [Recovered/Resolved]
  - Psychiatric symptom [Not Recovered/Not Resolved]
  - Emotional disorder [Not Recovered/Not Resolved]
